FAERS Safety Report 17116861 (Version 1)
Quarter: 2019Q4

REPORT INFORMATION
  Report Type: Spontaneous
  Country: FR (occurrence: FR)
  Receive Date: 20191205
  Receipt Date: 20191205
  Transmission Date: 20200122
  Serious: Yes (Hospitalization)
  Sender: FDA-Public Use
  Company Number: FR-MYLANLABS-2019M1118846

PATIENT
  Age: 34 Year
  Sex: Female
  Weight: 61 kg

DRUGS (3)
  1. ARIPIPRAZOLE. [Suspect]
     Active Substance: ARIPIPRAZOLE
     Indication: PRODUCT USED FOR UNKNOWN INDICATION
     Dosage: UNK
     Route: 048
     Dates: start: 20190630, end: 20190630
  2. FLUOXETINE [Suspect]
     Active Substance: FLUOXETINE HYDROCHLORIDE
     Indication: PRODUCT USED FOR UNKNOWN INDICATION
     Dosage: 3 GRAM
     Route: 048
     Dates: start: 20190630, end: 20190630
  3. LAMOTRIGINE. [Suspect]
     Active Substance: LAMOTRIGINE
     Indication: PRODUCT USED FOR UNKNOWN INDICATION
     Dosage: 3 GRAM
     Route: 048
     Dates: start: 20190630, end: 20190630

REACTIONS (6)
  - Agitation [Recovered/Resolved]
  - Somnolence [Recovered/Resolved]
  - Toxicity to various agents [Recovered/Resolved]
  - Dystonia [Recovered/Resolved]
  - Vomiting [Recovered/Resolved]
  - Disturbance in attention [Recovered/Resolved]

NARRATIVE: CASE EVENT DATE: 20190630
